FAERS Safety Report 10179189 (Version 2)
Quarter: 2014Q2

REPORT INFORMATION
  Report Type: Spontaneous
  Country: US (occurrence: US)
  Receive Date: 20140519
  Receipt Date: 20140609
  Transmission Date: 20141212
  Serious: No
  Sender: FDA-Public Use
  Company Number: US-PFIZER INC-2014135217

PATIENT
  Age: 30 Year
  Sex: Female

DRUGS (2)
  1. XELJANZ [Suspect]
     Indication: RHEUMATOID ARTHRITIS
     Dosage: 5 MG, 2X/DAY
     Route: 048
     Dates: start: 20140301
  2. METHOTREXATE [Concomitant]
     Dosage: 22.5 MG, Q WK

REACTIONS (2)
  - Fatigue [Unknown]
  - Pain [Unknown]
